FAERS Safety Report 11475676 (Version 1)
Quarter: 2015Q3

REPORT INFORMATION
  Report Type: Spontaneous
  Country: US (occurrence: US)
  Receive Date: 20150909
  Receipt Date: 20150909
  Transmission Date: 20151125
  Serious: No
  Sender: FDA-Public Use
  Company Number: US-009507513-1509USA000954

PATIENT
  Age: 82 Year
  Sex: Male

DRUGS (4)
  1. DULERA [Suspect]
     Active Substance: FORMOTEROL FUMARATE DIHYDRATE\MOMETASONE FUROATE
     Dosage: UNK
     Dates: end: 201509
  2. LOSARTIN [Concomitant]
     Active Substance: LOSARTAN
     Dosage: UNK
  3. ZETIA [Concomitant]
     Active Substance: EZETIMIBE
     Dosage: UNK
  4. PRAZOL (ESAPRAZOLE) [Concomitant]
     Dosage: UNK

REACTIONS (3)
  - Product container issue [Unknown]
  - Headache [Unknown]
  - Blood pressure increased [Unknown]

NARRATIVE: CASE EVENT DATE: 20150901
